FAERS Safety Report 6664671-1 (Version None)
Quarter: 2010Q1

REPORT INFORMATION
  Report Type: 
  Country: None (occurrence: None)
  Receive Date: 20100330
  Receipt Date: 20071203
  Transmission Date: 20100710
  Serious: Yes (Life-Threatening)
  Sender: FDA-Public Use
  Company Number: FR-GUERBET-20070026

PATIENT
  Age: 61 Year
  Sex: Male
  Weight: 95 kg

DRUGS (1)
  1. HEXABRIX [Suspect]
     Indication: ANGIOGRAM
     Dosage: 50, ML MILLILITRE(S), 1, 1,TOTAL    INTRA-ARTERIAL
     Route: 013

REACTIONS (4)
  - BRADYCARDIA [None]
  - BRONCHOSPASM [None]
  - FACE OEDEMA [None]
  - HYPOTENSION [None]
